FAERS Safety Report 4852932-8 (Version None)
Quarter: 2005Q4

REPORT INFORMATION
  Report Type: 
  Country: None (occurrence: None)
  Receive Date: 20051212
  Receipt Date: 20051130
  Transmission Date: 20060501
  Serious: Yes (Life-Threatening)
  Sender: FDA-Public Use
  Company Number: 2005162636

PATIENT
  Age: 77 Year
  Sex: Male

DRUGS (3)
  1. VFEND [Suspect]
     Indication: SYSTEMIC CANDIDA
     Dosage: INTRAVENOUS
     Route: 042
  2. IMMUNOSUPPRESSIVE AGENTS (IMMUNOSUPPRESSIVE AGENTS) [Concomitant]
  3. FOSFLUCONAZOLE (FOSFLUCONAZOLE) [Concomitant]

REACTIONS (1)
  - CARDIAC FAILURE [None]
